FAERS Safety Report 12517594 (Version 2)
Quarter: 2016Q3

REPORT INFORMATION
  Report Type: Spontaneous
  Country: CL (occurrence: CL)
  Receive Date: 20160630
  Receipt Date: 20160711
  Transmission Date: 20161109
  Serious: Yes (Hospitalization, Other)
  Sender: FDA-Public Use
  Company Number: PHHY2016CL088658

PATIENT
  Age: 59 Year
  Sex: Female
  Weight: 69.5 kg

DRUGS (10)
  1. CABERGOLINE. [Concomitant]
     Active Substance: CABERGOLINE
     Dosage: 1 MG, QW
     Route: 048
     Dates: start: 201511
  2. ENALAPRIL [Concomitant]
     Active Substance: ENALAPRIL
     Dosage: 100 OT, UNK
     Route: 065
     Dates: start: 20160309
  3. LEVOTHYROXINE. [Concomitant]
     Active Substance: LEVOTHYROXINE
     Dosage: 100 UG, QD
     Route: 048
     Dates: start: 20160309
  4. ENALAPRIL [Concomitant]
     Active Substance: ENALAPRIL
     Indication: PRODUCT USED FOR UNKNOWN INDICATION
     Dosage: 100 OT, UNK
     Route: 065
     Dates: start: 201511
  5. SANDOSTATIN LAR DEPOT [Suspect]
     Active Substance: OCTREOTIDE ACETATE
     Indication: ACROMEGALY
     Dosage: 20 MG, QMO, ONCE A MONTH
     Route: 030
     Dates: start: 20150915
  6. CALCIUM [Concomitant]
     Active Substance: CALCIUM
     Indication: PRODUCT USED FOR UNKNOWN INDICATION
     Route: 065
  7. LEVOTHYROXINE. [Concomitant]
     Active Substance: LEVOTHYROXINE
     Indication: HYPOTHYROIDISM
     Dosage: 100 UG, QD
     Route: 048
     Dates: start: 20141027
  8. CABERGOLINE. [Concomitant]
     Active Substance: CABERGOLINE
     Dosage: 1 MG, QW
     Route: 048
     Dates: start: 20160309
  9. LEVOTHYROXINE. [Concomitant]
     Active Substance: LEVOTHYROXINE
     Dosage: 100 UG, QD
     Route: 048
     Dates: start: 201511
  10. CABERGOLINE. [Concomitant]
     Active Substance: CABERGOLINE
     Indication: ACROMEGALY
     Dosage: 1 MG, QW
     Route: 048
     Dates: start: 20131211

REACTIONS (13)
  - Amylase increased [Unknown]
  - Abdominal pain upper [Recovered/Resolved]
  - Blood glucose increased [Unknown]
  - Nausea [Unknown]
  - Peripancreatic fluid collection [Recovered/Resolved]
  - Pancreatitis acute [Recovered/Resolved]
  - Gallbladder enlargement [Unknown]
  - Pancreatolithiasis [Recovered/Resolved]
  - Vomiting [Unknown]
  - Back pain [Recovered/Resolved]
  - Flank pain [Recovered/Resolved]
  - Abdominal distension [Unknown]
  - Lipase increased [Unknown]

NARRATIVE: CASE EVENT DATE: 201511
